FAERS Safety Report 13396721 (Version 1)
Quarter: 2017Q2

REPORT INFORMATION
  Report Type: Spontaneous
  Country: GB (occurrence: GB)
  Receive Date: 20170403
  Receipt Date: 20170403
  Transmission Date: 20170830
  Serious: Yes (Other)
  Sender: FDA-Public Use
  Company Number: GB-ASTRAZENECA-2017SE33108

PATIENT
  Age: 66 Year
  Sex: Female
  Weight: 91 kg

DRUGS (8)
  1. IPRATROPIUM BROMIDE. [Concomitant]
     Active Substance: IPRATROPIUM BROMIDE
     Dosage: 2 DF, 2-3 TIMES A DAY
     Route: 055
     Dates: start: 20160818
  2. ACCRETE D3 [Concomitant]
     Dates: start: 20160818
  3. BENDROFLUMETHIAZIDE [Concomitant]
     Active Substance: BENDROFLUMETHIAZIDE
     Dates: start: 20161206
  4. ADIZEM [Concomitant]
     Active Substance: DILTIAZEM HYDROCHLORIDE
     Dates: start: 20160818
  5. SIMVASTATIN. [Concomitant]
     Active Substance: SIMVASTATIN
     Dates: start: 20160818
  6. NAPROXEN. [Concomitant]
     Active Substance: NAPROXEN
     Dates: start: 20170125, end: 20170212
  7. OMEPRAZOLE. [Suspect]
     Active Substance: OMEPRAZOLE
     Route: 048
     Dates: start: 20170320
  8. PARACETAMOL [Concomitant]
     Active Substance: ACETAMINOPHEN
     Dosage: 1-2 DF, FOUR TIMES DAILY
     Dates: start: 20160818

REACTIONS (2)
  - Headache [Recovering/Resolving]
  - Amnesia [Recovering/Resolving]

NARRATIVE: CASE EVENT DATE: 20170320
